FAERS Safety Report 25487290 (Version 1)
Quarter: 2025Q2

REPORT INFORMATION
  Report Type: Spontaneous
  Country: CA (occurrence: CA)
  Receive Date: 20250627
  Receipt Date: 20250627
  Transmission Date: 20250717
  Serious: Yes (Death, Life-Threatening, Hospitalization, Disabling, Congenital Anomaly, Other)
  Sender: Haleon PLC
  Company Number: CA-HALEON-2249293

PATIENT
  Age: 43 Year
  Sex: Female
  Weight: 96 kg

DRUGS (80)
  1. VOLTAREN [Suspect]
     Active Substance: DICLOFENAC SODIUM
     Indication: Product used for unknown indication
  2. DICLOFENAC POTASSIUM [Suspect]
     Active Substance: DICLOFENAC POTASSIUM
     Indication: Product used for unknown indication
  3. DICLOFENAC POTASSIUM [Suspect]
     Active Substance: DICLOFENAC POTASSIUM
  4. DICLOFENAC SODIUM [Suspect]
     Active Substance: DICLOFENAC SODIUM
     Indication: Product used for unknown indication
  5. DICLOFENAC SODIUM [Suspect]
     Active Substance: DICLOFENAC SODIUM
  6. DICLOFENAC SODIUM [Suspect]
     Active Substance: DICLOFENAC SODIUM
  7. AIMOVIG [Suspect]
     Active Substance: ERENUMAB-AOOE
     Indication: Migraine
  8. COSENTYX [Suspect]
     Active Substance: SECUKINUMAB
     Indication: Psoriatic arthropathy
  9. COSENTYX [Suspect]
     Active Substance: SECUKINUMAB
     Indication: Psoriatic arthropathy
  10. ERELZI [Suspect]
     Active Substance: ETANERCEPT-SZZS
     Indication: Rheumatoid arthritis
     Route: 058
  11. ERELZI [Suspect]
     Active Substance: ETANERCEPT-SZZS
     Route: 058
  12. ERELZI [Suspect]
     Active Substance: ETANERCEPT-SZZS
     Indication: Rheumatoid arthritis
     Route: 058
  13. ERELZI [Suspect]
     Active Substance: ETANERCEPT-SZZS
     Route: 058
  14. ERENUMAB [Suspect]
     Active Substance: ERENUMAB
     Indication: Migraine
  15. LEFLUNOMIDE [Suspect]
     Active Substance: LEFLUNOMIDE
     Indication: Rheumatoid arthritis
     Dosage: ROUTE OF ADMINISTRATION:  UNKNOWN
  16. LEFLUNOMIDE [Suspect]
     Active Substance: LEFLUNOMIDE
  17. LEFLUNOMIDE [Suspect]
     Active Substance: LEFLUNOMIDE
  18. LEFLUNOMIDE [Suspect]
     Active Substance: LEFLUNOMIDE
     Route: 048
  19. LEFLUNOMIDE [Suspect]
     Active Substance: LEFLUNOMIDE
     Route: 048
  20. LEFLUNOMIDE [Suspect]
     Active Substance: LEFLUNOMIDE
     Route: 048
  21. LEFLUNOMIDE [Suspect]
     Active Substance: LEFLUNOMIDE
     Route: 048
  22. LEFLUNOMIDE [Suspect]
     Active Substance: LEFLUNOMIDE
     Dosage: ROUTE OF ADMINISTRATION:  UNKNOWN
  23. MYCOPHENOLATE MOFETIL [Suspect]
     Active Substance: MYCOPHENOLATE MOFETIL
     Indication: Product used for unknown indication
  24. RITUXIMAB [Suspect]
     Active Substance: RITUXIMAB
     Indication: Rheumatoid arthritis
  25. RITUXIMAB [Suspect]
     Active Substance: RITUXIMAB
  26. RITUXIMAB [Suspect]
     Active Substance: RITUXIMAB
  27. RITUXIMAB [Suspect]
     Active Substance: RITUXIMAB
  28. RITUXIMAB [Suspect]
     Active Substance: RITUXIMAB
  29. RITUXIMAB [Suspect]
     Active Substance: RITUXIMAB
  30. RITUXIMAB [Suspect]
     Active Substance: RITUXIMAB
  31. RITUXIMAB [Suspect]
     Active Substance: RITUXIMAB
  32. ADALIMUMAB [Suspect]
     Active Substance: ADALIMUMAB
     Indication: Rheumatoid arthritis
     Route: 058
  33. ADALIMUMAB [Suspect]
     Active Substance: ADALIMUMAB
     Route: 058
  34. ADALIMUMAB [Suspect]
     Active Substance: ADALIMUMAB
     Route: 058
  35. ADALIMUMAB [Suspect]
     Active Substance: ADALIMUMAB
     Route: 058
  36. ADALIMUMAB [Suspect]
     Active Substance: ADALIMUMAB
  37. ADALIMUMAB [Suspect]
     Active Substance: ADALIMUMAB
     Indication: Rheumatoid arthritis
     Route: 048
  38. CORTISONE [Suspect]
     Active Substance: CORTISONE
     Indication: Rheumatoid arthritis
     Route: 048
  39. CORTISONE [Suspect]
     Active Substance: CORTISONE
  40. CORTISONE [Suspect]
     Active Substance: CORTISONE
     Route: 003
  41. CORTISONE [Suspect]
     Active Substance: CORTISONE
     Route: 058
  42. CORTISONE [Suspect]
     Active Substance: CORTISONE
     Route: 058
  43. CORTISONE [Suspect]
     Active Substance: CORTISONE
  44. METHOTREXATE [Suspect]
     Active Substance: METHOTREXATE
     Indication: Rheumatoid arthritis
     Dosage: ROUTE OF ADMINISTRATION:  UNKNOWN
  45. METHOTREXATE [Suspect]
     Active Substance: METHOTREXATE
     Dosage: ROUTE OF ADMINISTRATION:  UNKNOWN
  46. METHOTREXATE [Suspect]
     Active Substance: METHOTREXATE
     Dosage: ROUTE OF ADMINISTRATION:  ORAL
  47. METHOTREXATE [Suspect]
     Active Substance: METHOTREXATE
     Dosage: ROUTE OF ADMINISTRATION:  ORAL
  48. METHOTREXATE [Suspect]
     Active Substance: METHOTREXATE
     Dosage: ROUTE OF ADMINISTRATION:  ORAL
  49. METHOTREXATE [Suspect]
     Active Substance: METHOTREXATE
     Dosage: ROUTE OF ADMINISTRATION:  SUBCUTANEOUS
  50. METHOTREXATE [Suspect]
     Active Substance: METHOTREXATE
     Dosage: ROUTE OF ADMINISTRATION: INTRA-ARTERIAL
  51. METHOTREXATE [Suspect]
     Active Substance: METHOTREXATE
     Dosage: ROUTE OF ADMINISTRATION:  UNKNOWN
  52. METHOTREXATE [Suspect]
     Active Substance: METHOTREXATE
     Dosage: ROUTE OF ADMINISTRATION: ORAL
  53. METHOTREXATE [Suspect]
     Active Substance: METHOTREXATE
     Dosage: 2 EVERY 1 DAYS, ROUTE OF ADMINISTRATION:  UNKNOWN
  54. METHOTREXATE [Suspect]
     Active Substance: METHOTREXATE
     Dosage: ROUTE OF ADMINISTRATION: INTRA-ARTERIAL
  55. METHOTREXATE [Suspect]
     Active Substance: METHOTREXATE
  56. METHOTREXATE [Suspect]
     Active Substance: METHOTREXATE
     Dosage: ROUTE OF ADMINISTRATION: ORAL
  57. METHOTREXATE [Suspect]
     Active Substance: METHOTREXATE
  58. METHOTREXATE [Suspect]
     Active Substance: METHOTREXATE
  59. METHOTREXATE [Suspect]
     Active Substance: METHOTREXATE
  60. METHOTREXATE [Suspect]
     Active Substance: METHOTREXATE
     Dosage: ROUTE OF ADMINISTRATION: SUBCUTANEOUS
  61. METHOTREXATE [Suspect]
     Active Substance: METHOTREXATE
     Dosage: ROUTE OF ADMINISTRATION: ORAL
  62. METHOTREXATE [Suspect]
     Active Substance: METHOTREXATE
     Dosage: ROUTE OF ADMINISTRATION: ORAL
  63. METHOTREXATE [Suspect]
     Active Substance: METHOTREXATE
  64. METHOTREXATE [Suspect]
     Active Substance: METHOTREXATE
  65. METHOTREXATE [Suspect]
     Active Substance: METHOTREXATE
  66. METHOTREXATE [Suspect]
     Active Substance: METHOTREXATE
  67. METHOTREXATE [Suspect]
     Active Substance: METHOTREXATE
  68. METHOTREXATE [Suspect]
     Active Substance: METHOTREXATE
     Dosage: ROUTE OF ADMINISTRATION:  UNKNOWN
  69. METHOTREXATE [Suspect]
     Active Substance: METHOTREXATE
  70. METHOTREXATE [Suspect]
     Active Substance: METHOTREXATE
     Dosage: ROUTE OF ADMINISTRATION:  ORAL
  71. METHOTREXATE [Suspect]
     Active Substance: METHOTREXATE
     Dosage: 2 EVERY 1 DAY, ROUTE OF ADMINISTRATION:  UNKNOWN
  72. METHOTREXATE [Suspect]
     Active Substance: METHOTREXATE
  73. METHOTREXATE [Suspect]
     Active Substance: METHOTREXATE
  74. METHOTREXATE [Suspect]
     Active Substance: METHOTREXATE
  75. METHOTREXATE [Suspect]
     Active Substance: METHOTREXATE
     Dosage: ROUTE OF ADMINISTRATION: INTRA-ARTERIAL
  76. METHOTREXATE [Suspect]
     Active Substance: METHOTREXATE
  77. METHOTREXATE [Suspect]
     Active Substance: METHOTREXATE
  78. METHOTREXATE [Suspect]
     Active Substance: METHOTREXATE
  79. METHOTREXATE [Suspect]
     Active Substance: METHOTREXATE
  80. METHOTREXATE [Suspect]
     Active Substance: METHOTREXATE

REACTIONS (53)
  - Rheumatic fever [Fatal]
  - Musculoskeletal stiffness [Fatal]
  - Type 2 diabetes mellitus [Fatal]
  - Obesity [Fatal]
  - Myositis [Fatal]
  - X-ray abnormal [Fatal]
  - Headache [Fatal]
  - Product use in unapproved indication [Fatal]
  - Paraesthesia [Fatal]
  - Night sweats [Fatal]
  - Hypersensitivity [Fatal]
  - Wheezing [Fatal]
  - Osteoarthritis [Fatal]
  - General symptom [Fatal]
  - Pustular psoriasis [Fatal]
  - Nasopharyngitis [Fatal]
  - Swollen joint count increased [Fatal]
  - Grip strength decreased [Fatal]
  - Wound infection [Fatal]
  - Pyrexia [Fatal]
  - Muscle injury [Fatal]
  - Pain [Fatal]
  - Product quality issue [Fatal]
  - Pain in extremity [Fatal]
  - Nail disorder [Fatal]
  - Pruritus [Fatal]
  - Pneumonia [Fatal]
  - Psoriasis [Fatal]
  - Sinusitis [Fatal]
  - Weight increased [Fatal]
  - Mobility decreased [Fatal]
  - Gait disturbance [Fatal]
  - Psoriatic arthropathy [Fatal]
  - Gastrointestinal disorder [Fatal]
  - Peripheral swelling [Fatal]
  - Ill-defined disorder [Fatal]
  - Pericarditis [Fatal]
  - Migraine [Fatal]
  - Oedema peripheral [Fatal]
  - Subcutaneous drug absorption impaired [Fatal]
  - Urticaria [Fatal]
  - Rash vesicular [Fatal]
  - Rash [Fatal]
  - Intentional product use issue [Fatal]
  - Sleep disorder due to a general medical condition [Fatal]
  - Taste disorder [Fatal]
  - Sleep disorder [Fatal]
  - Vomiting [Fatal]
  - Swelling [Fatal]
  - Weight decreased [Fatal]
  - Muscle spasms [Fatal]
  - Stomatitis [Fatal]
  - Peripheral venous disease [Fatal]
